FAERS Safety Report 15245346 (Version 1)
Quarter: 2018Q3

REPORT INFORMATION
  Report Type: Spontaneous
  Country: US (occurrence: US)
  Receive Date: 20180713
  Receipt Date: 20180713
  Transmission Date: 20181010
  Serious: Yes (Hospitalization)
  Sender: FDA-Public Use
  Company Number: None

PATIENT
  Sex: Female

DRUGS (5)
  1. MYCOPHENOLIC [Suspect]
     Active Substance: MYCOPHENOLIC ACID
     Indication: PRODUCT USED FOR UNKNOWN INDICATION
     Dosage: ?          OTHER FREQUENCY:2 TABS BID;?
     Route: 048
     Dates: start: 20150529
  2. VITAMIN D3 [Concomitant]
     Active Substance: CHOLECALCIFEROL
  3. VASOTEC [Concomitant]
     Active Substance: ENALAPRIL MALEATE
  4. NORVASC [Concomitant]
     Active Substance: AMLODIPINE BESYLATE
  5. TACROLIMUS. [Suspect]
     Active Substance: TACROLIMUS
     Indication: PRODUCT USED FOR UNKNOWN INDICATION
     Dosage: ?          OTHER FREQUENCY:3 CAP AM 2 CAP PM;?
     Route: 048
     Dates: start: 20150528

REACTIONS (2)
  - Renal transplant [None]
  - Intestinal obstruction [None]
